FAERS Safety Report 23781380 (Version 5)
Quarter: 2024Q2

REPORT INFORMATION
  Report Type: Spontaneous
  Country: CA (occurrence: CA)
  Receive Date: 20240425
  Receipt Date: 20240529
  Transmission Date: 20240716
  Serious: Yes (Other)
  Sender: FDA-Public Use
  Company Number: CA-CELLTRION INC.-2024CA007779

PATIENT

DRUGS (16)
  1. INFLECTRA [Suspect]
     Active Substance: INFLIXIMAB-DYYB
     Indication: Colitis ulcerative
     Dosage: 5 MG/KG, INDUCTION WEEK 0, 2, 6 THEN MAINTENANCE EVERY 8 WEEKS
     Route: 042
     Dates: start: 20240305
  2. INFLECTRA [Suspect]
     Active Substance: INFLIXIMAB-DYYB
     Dosage: 5 MG/KG, INDUCTION WEEK 0, 2, 6 THEN MAINTENANCE EVERY 8 WEEKS
     Route: 042
     Dates: start: 20240318
  3. INFLECTRA [Suspect]
     Active Substance: INFLIXIMAB-DYYB
     Dosage: 410 MG (5 MG/KG), INDUCTION WEEK 0, 2, 6 THEN MAINTENANCE EVERY 8 WEEKS (WEEK 6)
     Route: 042
     Dates: start: 20240416, end: 20240416
  4. INFLECTRA [Suspect]
     Active Substance: INFLIXIMAB-DYYB
     Dosage: 400 MG (5 MG/KG), EVERY 4 WEEKS
     Route: 042
     Dates: start: 20240514
  5. CORTISONE ACETATE [Suspect]
     Active Substance: CORTISONE ACETATE
     Dosage: 1 DF
     Route: 061
  6. ACETAMINOPHEN [Concomitant]
     Active Substance: ACETAMINOPHEN
     Indication: Premedication
     Dosage: 650 MG
     Route: 048
  7. ACETAMINOPHEN [Concomitant]
     Active Substance: ACETAMINOPHEN
     Dosage: 650 MG
     Dates: start: 20240416, end: 20240416
  8. BENADRYL [Concomitant]
     Active Substance: DIPHENHYDRAMINE HYDROCHLORIDE
     Indication: Premedication
     Dosage: 50 MG
     Dates: start: 20240416, end: 20240416
  9. DIPHENHYDRAMINE [Concomitant]
     Active Substance: DIPHENHYDRAMINE
     Indication: Premedication
     Dosage: 50 MG
     Route: 042
  10. ENTOCORT [Concomitant]
     Active Substance: BUDESONIDE
     Dosage: 1 DF
  11. HYDROCORTISONE [Concomitant]
     Active Substance: HYDROCORTISONE
     Indication: Premedication
     Dosage: 100 MG
     Route: 042
  12. HYDROCORTISONE [Concomitant]
     Active Substance: HYDROCORTISONE
     Dosage: 100 MG
     Dates: start: 20240416, end: 20240416
  13. PANTOPRAZOLE [Concomitant]
     Active Substance: PANTOPRAZOLE
     Dosage: 1 DF
  14. PENTASA [Concomitant]
     Active Substance: MESALAMINE
     Dosage: 1 DF
  15. PREDNISONE [Concomitant]
     Active Substance: PREDNISONE
     Dosage: 1 DF
     Dates: start: 20240228
  16. PREDNISONE [Concomitant]
     Active Substance: PREDNISONE
     Dosage: 15 MG

REACTIONS (18)
  - Condition aggravated [Not Recovered/Not Resolved]
  - Fatigue [Recovered/Resolved]
  - Feeling hot [Not Recovered/Not Resolved]
  - Nasopharyngitis [Recovering/Resolving]
  - Suicidal ideation [Unknown]
  - Drug ineffective [Unknown]
  - Therapeutic response shortened [Unknown]
  - Rash pruritic [Not Recovered/Not Resolved]
  - Miliaria [Not Recovered/Not Resolved]
  - Hyperaesthesia [Not Recovered/Not Resolved]
  - Poor quality sleep [Recovered/Resolved]
  - Night sweats [Recovered/Resolved]
  - Nausea [Unknown]
  - Throat irritation [Not Recovered/Not Resolved]
  - Productive cough [Not Recovered/Not Resolved]
  - Pyrexia [Recovered/Resolved]
  - Dyspepsia [Unknown]
  - Off label use [Unknown]

NARRATIVE: CASE EVENT DATE: 20240318
